FAERS Safety Report 12647195 (Version 1)
Quarter: 2016Q3

REPORT INFORMATION
  Report Type: Spontaneous
  Country: US (occurrence: None)
  Receive Date: 20160811
  Receipt Date: 20160811
  Transmission Date: 20161109
  Serious: No
  Sender: FDA-Public Use
  Company Number: None

PATIENT
  Age: 67 Year
  Sex: Male
  Weight: 83.92 kg

DRUGS (4)
  1. ALPRAZOLAM. [Concomitant]
     Active Substance: ALPRAZOLAM
  2. PRALUENT [Suspect]
     Active Substance: ALIROCUMAB
     Indication: BLOOD CHOLESTEROL INCREASED
     Dosage: 2 INJECTION (S) 1 X 2 WEEKS INJECTION
     Dates: start: 20151116, end: 20160801
  3. ASPIRIN. [Concomitant]
     Active Substance: ASPIRIN
  4. LISINPROL [Concomitant]

REACTIONS (2)
  - Product packaging issue [None]
  - Incorrect product storage [None]

NARRATIVE: CASE EVENT DATE: 20160809
